FAERS Safety Report 6474426-9 (Version None)
Quarter: 2009Q4

REPORT INFORMATION
  Report Type: 
  Country: None (occurrence: None)
  Receive Date: 20091204
  Receipt Date: 20091130
  Transmission Date: 20100525
  Serious: Yes (Other)
  Sender: FDA-Public Use
  Company Number: US-ELI_LILLY_AND_COMPANY-US200912000094

PATIENT
  Sex: Female

DRUGS (5)
  1. HUMALOG [Suspect]
     Indication: DIABETES MELLITUS
     Dosage: 35 U, DAILY (1/D)
     Dates: start: 20090930
  2. HUMALOG [Suspect]
     Dosage: UNK, AS NEEDED
     Dates: start: 20090930
  3. HUMALOG [Suspect]
     Dosage: 35 U, DAILY (1/D)
     Dates: start: 19790101
  4. HUMALOG [Suspect]
     Dosage: UNK, AS NEEDED
     Dates: start: 19790101
  5. LANTUS [Concomitant]

REACTIONS (8)
  - BALANCE DISORDER [None]
  - BLOOD GLUCOSE INCREASED [None]
  - CEREBROVASCULAR ACCIDENT [None]
  - CORONARY ARTERY BYPASS [None]
  - DRUG DOSE OMISSION [None]
  - PERIPHERAL VASCULAR DISORDER [None]
  - SENSORY LOSS [None]
  - STENT PLACEMENT [None]
